FAERS Safety Report 9645425 (Version 5)
Quarter: 2013Q4

REPORT INFORMATION
  Report Type: Report from Study
  Country: HU (occurrence: HU)
  Receive Date: 20131025
  Receipt Date: 20131216
  Transmission Date: 20140711
  Serious: Yes (Hospitalization, Other)
  Sender: FDA-Public Use
  Company Number: HU-PFIZER INC-2013298830

PATIENT
  Age: 66 Year
  Sex: Male
  Weight: 130 kg

DRUGS (15)
  1. TOFACITINIB CITRATE [Suspect]
     Indication: PSORIASIS
     Dosage: 10 MG, 2X/DAY, MOST RECENT DOSE BEFORE THE EVENT 08OCT2013
     Route: 048
     Dates: start: 20120606, end: 20131018
  2. MEFORAL [Concomitant]
     Indication: TYPE 2 DIABETES MELLITUS
     Dosage: UNK
     Dates: start: 201106
  3. HUMULIN R [Concomitant]
     Indication: TYPE 2 DIABETES MELLITUS
     Dosage: UNK
     Dates: start: 20110201
  4. TAMSULIN [Concomitant]
     Indication: BENIGN PROSTATIC HYPERPLASIA
     Dosage: UNK
     Dates: start: 2005
  5. CARVEDILOL [Concomitant]
     Indication: HYPERTENSION
     Dosage: UNK
     Dates: start: 201002
  6. PRETANIX COMB FORTE [Concomitant]
     Indication: HYPERTENSION
     Dosage: UNK
     Dates: start: 201106
  7. LAVESTRA [Concomitant]
     Indication: HYPERTENSION
     Dosage: UNK
     Dates: start: 201106
  8. ASPIRIN PROTECT [Concomitant]
     Indication: HYPERTENSION
     Dosage: UNK
     Dates: start: 2005
  9. FUROSEMIDE [Concomitant]
     Indication: HYPERTENSION
     Dosage: UNK
     Dates: start: 2005
  10. KALDYUM [Concomitant]
     Indication: HYPERTENSION
     Dosage: UNK
     Dates: start: 2005
  11. THEOPHYLLINE [Concomitant]
     Indication: ASTHMA
     Dosage: UNK
     Route: 048
     Dates: start: 2010
  12. SERETIDE [Concomitant]
     Indication: ASTHMA
     Dosage: UNK
     Route: 039
     Dates: start: 2005
  13. VENTOLIN [Concomitant]
     Indication: ASTHMA
     Dosage: UNK
     Route: 039
     Dates: start: 2005
  14. APRANAX [Concomitant]
     Indication: PSORIATIC ARTHROPATHY
     Dosage: UNK
     Route: 048
     Dates: start: 20130715
  15. MYDETON [Concomitant]
     Indication: PSORIATIC ARTHROPATHY
     Dosage: UNK
     Route: 048
     Dates: start: 20130715

REACTIONS (1)
  - Laryngeal cancer [Not Recovered/Not Resolved]
